FAERS Safety Report 8672932 (Version 7)
Quarter: 2013Q3

REPORT INFORMATION
  Report Type: Spontaneous
  Country: US (occurrence: US)
  Receive Date: 20120719
  Receipt Date: 20130904
  Transmission Date: 20140515
  Serious: Yes (Hospitalization, Disabling, Other)
  Sender: FDA-Public Use
  Company Number: US-009507513-1207USA003685

PATIENT
  Sex: Female
  Weight: 42.63 kg

DRUGS (6)
  1. FOSAMAX [Suspect]
     Indication: OSTEOPOROSIS
     Dosage: 5 MG, UNK
     Route: 048
     Dates: start: 20010302, end: 201202
  2. FOSAMAX [Suspect]
     Indication: OSTEOPENIA
     Dosage: 70 MG, UNK
     Route: 048
     Dates: start: 20110506
  3. OMEPRAZOLE [Concomitant]
     Dosage: UNK
     Dates: start: 2000
  4. GLUCERNA [Concomitant]
     Dosage: UNK
     Dates: start: 2002
  5. FOSAMAX [Suspect]
     Indication: OSTEOPOROSIS
     Dosage: 70 MG, UNK
     Route: 048
  6. FOSAMAX [Suspect]
     Indication: OSTEOPENIA

REACTIONS (66)
  - Pathological fracture [Unknown]
  - Stress fracture [Unknown]
  - Femur fracture [Unknown]
  - Femur fracture [Unknown]
  - Low turnover osteopathy [Unknown]
  - Anaemia postoperative [Unknown]
  - Osteoporosis [Unknown]
  - Hip fracture [Unknown]
  - Hip arthroplasty [Unknown]
  - Radius fracture [Unknown]
  - Open reduction of fracture [Unknown]
  - Hernia [Unknown]
  - Acute myocardial infarction [Unknown]
  - Vascular pseudoaneurysm ruptured [Unknown]
  - Aneurysm repair [Unknown]
  - Coronary artery bypass [Unknown]
  - Coronary artery disease [Unknown]
  - Cholecystitis acute [Unknown]
  - Cholelithiasis [Unknown]
  - Cholecystectomy [Unknown]
  - Liver disorder [Unknown]
  - Intestinal perforation [Unknown]
  - Diverticulitis [Unknown]
  - Small intestinal obstruction [Unknown]
  - Colectomy [Unknown]
  - Colostomy [Unknown]
  - Venous ligation [Unknown]
  - Haemorrhoids [Unknown]
  - Vascular pseudoaneurysm [Unknown]
  - Carotid artery stenosis [Unknown]
  - Kidney small [Unknown]
  - Vitamin B12 deficiency [Unknown]
  - Fall [Unknown]
  - Kidney small [Unknown]
  - Atrial fibrillation [Unknown]
  - Osteolysis [Unknown]
  - Blood albumin decreased [Unknown]
  - Urinary tract infection [Unknown]
  - Asthenia [Unknown]
  - Peripheral vascular disorder [Unknown]
  - Gastroenteritis Escherichia coli [Unknown]
  - Open reduction of fracture [Unknown]
  - Chronic obstructive pulmonary disease [Unknown]
  - Pneumoperitoneum [Unknown]
  - Rib fracture [Recovered/Resolved]
  - Hypertension [Unknown]
  - Scoliosis [Unknown]
  - Peptic ulcer [Unknown]
  - Uterine leiomyoma [Unknown]
  - Type 2 diabetes mellitus [Unknown]
  - Rheumatoid arthritis [Unknown]
  - Asthma [Unknown]
  - Hyperlipidaemia [Unknown]
  - Endodontic procedure [Unknown]
  - Fall [Unknown]
  - Hypercholesterolaemia [Unknown]
  - Spinal compression fracture [Unknown]
  - Increased tendency to bruise [Unknown]
  - Sinus disorder [Unknown]
  - Heart rate irregular [Unknown]
  - Haematoma [Unknown]
  - Hypotonia [Unknown]
  - Osteoarthritis [Unknown]
  - Fall [Unknown]
  - Gastritis [Unknown]
  - Gastrooesophageal reflux disease [Unknown]
